FAERS Safety Report 5504469-0 (Version None)
Quarter: 2007Q4

REPORT INFORMATION
  Report Type: 
  Country: None (occurrence: None)
  Receive Date: 20071101
  Receipt Date: 20071023
  Transmission Date: 20080405
  Serious: Yes (Other)
  Sender: FDA-Public Use
  Company Number: PH-PFIZER INC-2007089610

PATIENT
  Age: 61 Year
  Sex: Female

DRUGS (1)
  1. SULPERAZONE [Suspect]
     Indication: POSTOPERATIVE CARE
     Dosage: TEXT:1.5G
     Dates: start: 20070101, end: 20070101

REACTIONS (2)
  - EYE HAEMORRHAGE [None]
  - THROMBOCYTOPENIA [None]
